FAERS Safety Report 5056323-9 (Version None)
Quarter: 2006Q3

REPORT INFORMATION
  Report Type: 
  Country: None (occurrence: None)
  Receive Date: 20060717
  Receipt Date: 20060703
  Transmission Date: 20061208
  Serious: Yes (Other)
  Sender: FDA-Public Use
  Company Number: GBWYE942803JUL06

PATIENT
  Sex: Male

DRUGS (2)
  1. EFFEXOR XR [Suspect]
     Indication: DEPRESSION
     Dosage: 225 MG ; 150 MG
     Route: 064
     Dates: end: 20051230
  2. ZOPLICLONE (ZOPLICLONE) [Suspect]
     Dosage: 7.5 MG
     Dates: end: 20050201

REACTIONS (5)
  - ACOUSTIC STIMULATION TESTS ABNORMAL [None]
  - DRUG EXPOSURE DURING PREGNANCY [None]
  - FACIAL PARESIS [None]
  - HEMIPARESIS [None]
  - NEONATAL DISORDER [None]
